FAERS Safety Report 9316800 (Version 1)
Quarter: 2013Q2

REPORT INFORMATION
  Report Type: Spontaneous
  Country: US (occurrence: US)
  Receive Date: 20130530
  Receipt Date: 20130530
  Transmission Date: 20140414
  Serious: Yes (Other)
  Sender: FDA-Public Use
  Company Number: US-BAYER-2013-064485

PATIENT
  Age: 37 Year
  Sex: Female

DRUGS (2)
  1. MIRENA [Suspect]
     Indication: CONTRACEPTION
     Dosage: 20 MCG/24HR, CONT
     Route: 015
     Dates: start: 201208
  2. ORAL CONTRACEPTIVE NOS [Concomitant]
     Indication: VAGINAL HAEMORRHAGE

REACTIONS (2)
  - Vaginal haemorrhage [None]
  - Injury associated with device [None]
